FAERS Safety Report 6032936-2 (Version None)
Quarter: 2009Q1

REPORT INFORMATION
  Report Type: 
  Country: None (occurrence: None)
  Receive Date: 20090109
  Receipt Date: 20090106
  Transmission Date: 20090719
  Serious: Yes (Death, Hospitalization, Other)
  Sender: FDA-Public Use
  Company Number: PHHO2007MX13365

PATIENT
  Age: 81 Year
  Sex: Male

DRUGS (1)
  1. DIOVAN HCT [Suspect]
     Indication: HYPERTENSION
     Dosage: 160MG/12.5 MG DAILY
     Route: 048

REACTIONS (4)
  - DIABETIC NEPHROPATHY [None]
  - FLUID RETENTION [None]
  - MYOCARDIAL INFARCTION [None]
  - RENAL DISORDER [None]
